FAERS Safety Report 8449991-2 (Version None)
Quarter: 2012Q2

REPORT INFORMATION
  Report Type: 
  Country: None (occurrence: None)
  Receive Date: 20120620
  Receipt Date: 20120618
  Transmission Date: 20120825
  Serious: Yes (Death, Hospitalization, Other)
  Sender: FDA-Public Use
  Company Number: PHHY2011FR37956

PATIENT
  Sex: Female

DRUGS (8)
  1. VOLTAREN [Suspect]
     Route: 061
  2. HYPERIUM [Concomitant]
  3. AMLODIPINE BESYLATE [Concomitant]
     Dosage: UNK
  4. TIMOLOL MALEATE [Concomitant]
     Dosage: UNK
  5. VOLTAREN [Suspect]
     Indication: ARTHRALGIA
     Dosage: UNK
     Route: 048
  6. CANDESARTAN CILEXETIL AND HYDROCHLOROTHIAZIDE [Concomitant]
     Dosage: UNK
  7. ZOLPIDEM TARTRATE [Concomitant]
  8. ERGOCALCIFEROL [Concomitant]
     Dosage: UNK

REACTIONS (10)
  - HAEMOGLOBIN DECREASED [None]
  - MELAENA [None]
  - METASTASES TO PERITONEUM [None]
  - ABDOMINAL PAIN UPPER [None]
  - HAEMORRHAGE [None]
  - HAEMORRHAGIC ANAEMIA [None]
  - GASTRIC CANCER [None]
  - MICROCYTIC ANAEMIA [None]
  - GAIT DISTURBANCE [None]
  - ASTHENIA [None]
